FAERS Safety Report 8234813-5 (Version None)
Quarter: 2012Q1

REPORT INFORMATION
  Report Type: 
  Country: None (occurrence: None)
  Receive Date: 20120326
  Receipt Date: 20120322
  Transmission Date: 20120608
  Serious: Yes (Hospitalization)
  Sender: FDA-Public Use
  Company Number: DE-ROCHE-1046721

PATIENT
  Sex: Female
  Weight: 55 kg

DRUGS (6)
  1. AVASTIN [Suspect]
     Indication: BREAST CANCER
     Dosage: RECENT DOSE ON 17 JAN 2012
     Route: 042
     Dates: start: 20110826, end: 20120117
  2. XELODA [Suspect]
     Indication: BREAST CANCER
     Dosage: RECENT DOSE ON 03 JAN 2012
     Route: 048
     Dates: start: 20110926
  3. MORPHINE [Concomitant]
     Dosage: 40 TO 50 MG
     Dates: start: 20080601
  4. PANTOPRAZOLE [Concomitant]
     Dates: start: 20111025
  5. AMITRIPTYLINE HCL [Concomitant]
     Dates: start: 19750101
  6. VINORELBINE TARTRATE [Suspect]
     Indication: BREAST CANCER
     Dosage: RECENT DOSE ON 24 JAN 2012
     Dates: start: 20110926, end: 20120124

REACTIONS (3)
  - COLITIS ULCERATIVE [None]
  - ENTEROCOLITIS HAEMORRHAGIC [None]
  - CYSTITIS [None]
